FAERS Safety Report 6638501-8 (Version None)
Quarter: 2010Q1

REPORT INFORMATION
  Report Type: 
  Country: None (occurrence: None)
  Receive Date: 20100317
  Receipt Date: 20100309
  Transmission Date: 20100710
  Serious: Yes (Other)
  Sender: FDA-Public Use
  Company Number: US-BAXTER-2009BH019355

PATIENT
  Age: 48 Year
  Sex: Female
  Weight: 79 kg

DRUGS (9)
  1. HEPARIN SODIUM INJECTION [Suspect]
     Indication: PULMONARY EMBOLISM
     Route: 042
     Dates: start: 20071214, end: 20071214
  2. HEPARIN SODIUM INJECTION [Suspect]
     Route: 042
     Dates: start: 20071214, end: 20071216
  3. HEPARIN SODIUM INJECTION [Suspect]
     Route: 042
     Dates: start: 20071214, end: 20071214
  4. HEPARIN SODIUM INJECTION [Suspect]
     Route: 042
     Dates: start: 20071216, end: 20071219
  5. HEPARIN SODIUM INJECTION [Suspect]
     Route: 042
     Dates: start: 20071219, end: 20071220
  6. HEPARIN SODIUM INJECTION [Suspect]
     Route: 042
     Dates: start: 20071220, end: 20071220
  7. HEPARIN SODIUM INJECTION [Suspect]
     Route: 042
     Dates: start: 20071221, end: 20071221
  8. LOVENOX [Concomitant]
     Indication: THROMBOSIS
     Route: 065
  9. WARFARIN SODIUM [Concomitant]
     Indication: THROMBOSIS
     Route: 065

REACTIONS (3)
  - ADRENAL HAEMORRHAGE [None]
  - DYSPNOEA [None]
  - PARAESTHESIA [None]
